FAERS Safety Report 23272792 (Version 2)
Quarter: 2024Q3

REPORT INFORMATION
  Report Type: Spontaneous
  Country: US (occurrence: US)
  Receive Date: 20231207
  Receipt Date: 20240909
  Transmission Date: 20241016
  Serious: No
  Sender: SANOFI AVENTIS
  Company Number: US-SA-SAC20231205001477

PATIENT
  Age: 51 Year
  Sex: Male

DRUGS (1)
  1. DUPIXENT [Suspect]
     Active Substance: DUPILUMAB
     Indication: Asthma
     Dosage: UNK
     Route: 058
     Dates: start: 2016

REACTIONS (4)
  - Hypersomnia [Recovering/Resolving]
  - Fatigue [Recovering/Resolving]
  - Injection site bruising [Unknown]
  - Wrong technique in product usage process [Unknown]
